FAERS Safety Report 15365348 (Version 5)
Quarter: 2018Q4

REPORT INFORMATION
  Report Type: Spontaneous
  Country: US (occurrence: US)
  Receive Date: 20180910
  Receipt Date: 20181112
  Transmission Date: 20190204
  Serious: No
  Sender: FDA-Public Use
  Company Number: US-PFIZER INC-2018359060

PATIENT
  Age: 12 Year
  Sex: Female
  Weight: 61.23 kg

DRUGS (2)
  1. GENOTROPIN [Suspect]
     Active Substance: SOMATROPIN
     Dosage: UNK
  2. GENOTROPIN [Suspect]
     Active Substance: SOMATROPIN
     Indication: GROWTH HORMONE DEFICIENCY
     Dosage: 2.6 MG, ONCE DAILY
     Dates: start: 201504

REACTIONS (1)
  - Blood test abnormal [Unknown]

NARRATIVE: CASE EVENT DATE: 201806
